FAERS Safety Report 18688193 (Version 1)
Quarter: 2020Q4

REPORT INFORMATION
  Report Type: Spontaneous
  Country: HR (occurrence: HR)
  Receive Date: 20201231
  Receipt Date: 20201231
  Transmission Date: 20210114
  Serious: Yes (Other)
  Sender: FDA-Public Use
  Company Number: HR-UCBSA-2020054352

PATIENT
  Age: 30 Year
  Sex: Female

DRUGS (3)
  1. DECORTIN [Concomitant]
     Active Substance: PREDNISONE
     Indication: RHEUMATOID ARTHRITIS
     Route: 048
  2. CIMZIA [Suspect]
     Active Substance: CERTOLIZUMAB PEGOL
     Indication: RHEUMATOID ARTHRITIS
     Route: 058
     Dates: start: 201904, end: 20201104
  3. RESOCHIN [Concomitant]
     Active Substance: NIFEDIPINE
     Indication: RHEUMATOID ARTHRITIS
     Dosage: 250 MILLIGRAM, ONCE DAILY (QD)
     Route: 048

REACTIONS (4)
  - Drug ineffective [Unknown]
  - Autoantibody positive [Unknown]
  - Systemic lupus erythematosus [Unknown]
  - Rheumatoid arthritis [Recovering/Resolving]

NARRATIVE: CASE EVENT DATE: 202010
